FAERS Safety Report 7645064-7 (Version None)
Quarter: 2011Q3

REPORT INFORMATION
  Report Type: 
  Country: None (occurrence: None)
  Receive Date: 20110729
  Receipt Date: 20110721
  Transmission Date: 20111222
  Serious: Yes (Hospitalization, Other)
  Sender: FDA-Public Use
  Company Number: US-BAYER-2010-007095

PATIENT
  Age: 42 Year
  Sex: Female
  Weight: 90.703 kg

DRUGS (4)
  1. SYNTHROID [Concomitant]
  2. DIURETICS [Concomitant]
  3. YAZ [Suspect]
     Indication: PREMENSTRUAL SYNDROME
     Dosage: UNK
     Dates: start: 20080601
  4. YASMIN [Suspect]
     Indication: PREMENSTRUAL SYNDROME
     Dosage: UNK
     Dates: start: 20080601

REACTIONS (4)
  - CHOLECYSTECTOMY [None]
  - DEPRESSION [None]
  - PAIN [None]
  - DEEP VEIN THROMBOSIS [None]
